FAERS Safety Report 6561856-X (Version None)
Quarter: 2010Q1

REPORT INFORMATION
  Report Type: 
  Country: None (occurrence: None)
  Receive Date: 20100130
  Receipt Date: 20091030
  Transmission Date: 20100710
  Serious: No
  Sender: FDA-Public Use
  Company Number: US-ABBOTT-09P-163-0606652-00

PATIENT
  Sex: Female
  Weight: 47.67 kg

DRUGS (6)
  1. HUMIRA [Suspect]
     Indication: ANKYLOSING SPONDYLITIS
     Route: 058
     Dates: start: 20090806, end: 20091029
  2. PREDNISONE [Concomitant]
     Indication: ANKYLOSING SPONDYLITIS
     Dates: start: 20090801
  3. PREDNISONE [Concomitant]
     Dates: end: 20091102
  4. PREDNISONE [Concomitant]
  5. BENICAR [Concomitant]
     Indication: HYPERTENSION
     Dosage: EVERY MORNING
  6. TOPROL-XL [Concomitant]
     Indication: HYPERTENSION
     Dosage: EVERY NIGHT

REACTIONS (5)
  - BEDRIDDEN [None]
  - DRUG INEFFECTIVE [None]
  - ESCHERICHIA URINARY TRACT INFECTION [None]
  - FEELING HOT [None]
  - GAIT DISTURBANCE [None]
